FAERS Safety Report 10882015 (Version 2)
Quarter: 2015Q1

REPORT INFORMATION
  Report Type: Spontaneous
  Country: RS (occurrence: RS)
  Receive Date: 20150303
  Receipt Date: 20150311
  Transmission Date: 20150721
  Serious: Yes (Death, Life-Threatening, Other)
  Sender: FDA-Public Use
  Company Number: RS-PFIZER INC-2015074120

PATIENT
  Age: 58 Year

DRUGS (6)
  1. PANTOPRAZOLE [Suspect]
     Active Substance: PANTOPRAZOLE SODIUM
     Indication: PROPHYLAXIS
     Dosage: UNK
     Dates: start: 20141223, end: 20150120
  2. PARACETAMOL [Suspect]
     Active Substance: ACETAMINOPHEN
     Indication: PYREXIA
     Dosage: UNK
  3. PRONISON [Concomitant]
     Active Substance: PREDNISONE
     Dosage: UNK
  4. CORYOL [Concomitant]
     Active Substance: CARVEDILOL
     Dosage: UNK
  5. MONOPRIL [Concomitant]
     Active Substance: FOSINOPRIL SODIUM
     Dosage: UNK
  6. LASIX [Concomitant]
     Active Substance: FUROSEMIDE
     Dosage: UNK

REACTIONS (4)
  - Rash generalised [Fatal]
  - Sepsis [Fatal]
  - Skin necrosis [Fatal]
  - Skin exfoliation [Fatal]

NARRATIVE: CASE EVENT DATE: 20150112
